FAERS Safety Report 16747186 (Version 1)
Quarter: 2019Q3

REPORT INFORMATION
  Report Type: Spontaneous
  Country: US (occurrence: US)
  Receive Date: 20190827
  Receipt Date: 20190827
  Transmission Date: 20191005
  Serious: No
  Sender: FDA-Public Use
  Company Number: PHEH2019US035491

PATIENT
  Sex: Female
  Weight: 58.51 kg

DRUGS (1)
  1. CEFTRIAXONE. [Suspect]
     Active Substance: CEFTRIAXONE
     Indication: ENDOMETRITIS DECIDUAL
     Dosage: UNK
     Route: 065

REACTIONS (1)
  - Expired product administered [Unknown]
